FAERS Safety Report 9144863 (Version 1)
Quarter: 2013Q1

REPORT INFORMATION
  Report Type: Spontaneous
  Country: DE (occurrence: DE)
  Receive Date: 20130307
  Receipt Date: 20130307
  Transmission Date: 20140127
  Serious: Yes (Hospitalization)
  Sender: FDA-Public Use
  Company Number: DE-009507513-1303DEU001337

PATIENT
  Age: 76 Year
  Sex: Female

DRUGS (1)
  1. LORZAAR PROTECT 50MG FILMTABLETTEN [Suspect]
     Indication: CARDIAC FAILURE
     Dosage: 25 MG, BID
     Route: 048

REACTIONS (1)
  - Pulmonary oedema [Recovering/Resolving]
